FAERS Safety Report 18166467 (Version 3)
Quarter: 2020Q3

REPORT INFORMATION
  Report Type: Report from Study
  Country: CO (occurrence: CO)
  Receive Date: 20200818
  Receipt Date: 20200914
  Transmission Date: 20201103
  Serious: Yes (Death, Hospitalization, Other)
  Sender: FDA-Public Use
  Company Number: NVSC2020CO226524

PATIENT
  Age: 57 Year
  Sex: Female
  Weight: 68 kg

DRUGS (2)
  1. KISQALI [Suspect]
     Active Substance: RIBOCICLIB
     Indication: BREAST CANCER METASTATIC
     Dosage: 600 MG, QD (ONCE DAILY) (3 YEARS AGO)
     Route: 048
     Dates: end: 20200812
  2. FEMARA [Suspect]
     Active Substance: LETROZOLE
     Indication: BREAST CANCER METASTATIC
     Dosage: 2.5 MG, QD (ONCE DAILY) (3 YEARS AGO)
     Route: 048
     Dates: end: 20200812

REACTIONS (9)
  - Pleural effusion [Unknown]
  - Malaise [Unknown]
  - Vomiting [Unknown]
  - Metastases to liver [Fatal]
  - Movement disorder [Unknown]
  - Muscular weakness [Unknown]
  - Eating disorder [Unknown]
  - Diarrhoea [Unknown]
  - Dyspnoea [Unknown]

NARRATIVE: CASE EVENT DATE: 202006
